FAERS Safety Report 14948123 (Version 1)
Quarter: 2018Q2

REPORT INFORMATION
  Report Type: Spontaneous
  Country: BE (occurrence: BE)
  Receive Date: 20180529
  Receipt Date: 20180529
  Transmission Date: 20180711
  Serious: Yes (Other)
  Sender: FDA-Public Use
  Company Number: BE-PFIZER INC-2018211881

PATIENT
  Age: 36 Year
  Sex: Male

DRUGS (1)
  1. TEMESTA (LORAZEPAM) [Suspect]
     Active Substance: LORAZEPAM

REACTIONS (5)
  - Mental disorder [Unknown]
  - Anger [Unknown]
  - Suicidal ideation [Unknown]
  - Insomnia [Unknown]
  - Overdose [Unknown]
